FAERS Safety Report 10094112 (Version 2)
Quarter: 2014Q2

REPORT INFORMATION
  Report Type: Spontaneous
  Country: US (occurrence: US)
  Receive Date: 20140422
  Receipt Date: 20140509
  Transmission Date: 20141212
  Serious: Yes (Hospitalization)
  Sender: FDA-Public Use
  Company Number: US-009507513-1404USA009862

PATIENT
  Sex: Male

DRUGS (4)
  1. REBETOL [Suspect]
     Indication: HEPATITIS C
     Dosage: 4 PILLS DAILY
     Route: 048
     Dates: start: 20081003, end: 20090515
  2. PEGASYS [Suspect]
     Indication: HEPATITIS C
     Dosage: PREFILLED SYRINGE WEEKLY
     Route: 058
     Dates: start: 20081003, end: 20090306
  3. INFERGEN [Suspect]
     Indication: HEPATITIS C
     Dosage: UNK, QW
     Dates: start: 20090313, end: 20090515
  4. NORVASC [Concomitant]
     Dosage: 1 DAILY

REACTIONS (10)
  - Respiratory disorder [Unknown]
  - White blood cell count decreased [Unknown]
  - Decreased appetite [Unknown]
  - Fatigue [Unknown]
  - Infection [Unknown]
  - Weight decreased [Unknown]
  - Depression [Unknown]
  - Alopecia [Unknown]
  - Drug ineffective [Unknown]
  - Therapeutic response decreased [Unknown]
